FAERS Safety Report 19889424 (Version 1)
Quarter: 2021Q3

REPORT INFORMATION
  Report Type: Spontaneous
  Country: US (occurrence: US)
  Receive Date: 20210928
  Receipt Date: 20210928
  Transmission Date: 20211014
  Serious: Yes (Other)
  Sender: FDA-Public Use
  Company Number: US-AUROBINDO-AUR-APL-2021-039369

PATIENT
  Age: 49 Year
  Sex: Female

DRUGS (6)
  1. PHENYLEPHRINE HYDROCHLORIDE INJECTION [Suspect]
     Active Substance: PHENYLEPHRINE HYDROCHLORIDE
     Indication: HYPOTENSION
     Dosage: 500 MICROGRAM, TOTAL
     Route: 065
  2. VASOPRESSIN. [Suspect]
     Active Substance: VASOPRESSIN
     Indication: HYPOTENSION
     Dosage: 0.04 UNITS/MINUTES
     Route: 065
  3. PHENYLEPHRINE HYDROCHLORIDE INJECTION [Suspect]
     Active Substance: PHENYLEPHRINE HYDROCHLORIDE
     Dosage: 150 MICROGRAM/MINUTES
     Route: 065
  4. PHENYLEPHRINE HYDROCHLORIDE INJECTION [Suspect]
     Active Substance: PHENYLEPHRINE HYDROCHLORIDE
     Dosage: 20 MICROGRAM/MINUTES
     Route: 065
  5. EPINEPHRINE. [Suspect]
     Active Substance: EPINEPHRINE
     Dosage: 10 MICROGRAM/MINUTES
     Route: 065
  6. EPINEPHRINE. [Suspect]
     Active Substance: EPINEPHRINE
     Indication: HYPOTENSION
     Dosage: 3 MICROGRAM/MINUTES
     Route: 065

REACTIONS (1)
  - Drug ineffective [Unknown]
